FAERS Safety Report 16982463 (Version 2)
Quarter: 2019Q4

REPORT INFORMATION
  Report Type: Spontaneous
  Country: US (occurrence: US)
  Receive Date: 20191101
  Receipt Date: 20191205
  Transmission Date: 20200122
  Serious: Yes (Other)
  Sender: FDA-Public Use
  Company Number: US-ASTRAZENECA-2019SF42909

PATIENT
  Age: 17591 Day
  Sex: Female
  Weight: 49.9 kg

DRUGS (7)
  1. FASENRA [Suspect]
     Active Substance: BENRALIZUMAB
     Indication: NASAL POLYPS
     Dosage: 30.0MG UNKNOWN
     Route: 058
     Dates: start: 20191002
  2. PREDNISONE. [Concomitant]
     Active Substance: PREDNISONE
  3. FASENRA [Suspect]
     Active Substance: BENRALIZUMAB
     Indication: ASTHMA
     Dosage: 30.0MG UNKNOWN
     Route: 058
     Dates: start: 20191002
  4. ALBUTEROL. [Concomitant]
     Active Substance: ALBUTEROL
  5. FASENRA [Suspect]
     Active Substance: BENRALIZUMAB
     Indication: LUNG DISORDER
     Dosage: 30.0MG UNKNOWN
     Route: 058
     Dates: start: 20191002
  6. SYMBICORT [Concomitant]
     Active Substance: BUDESONIDE\FORMOTEROL FUMARATE DIHYDRATE
  7. ASA [Concomitant]
     Active Substance: ASPIRIN

REACTIONS (7)
  - Gait disturbance [Recovered/Resolved]
  - Flushing [Recovered/Resolved]
  - Myalgia [Recovered/Resolved]
  - Asthma [Unknown]
  - Nasal polyps [Unknown]
  - Headache [Recovered/Resolved]
  - Nasal disorder [Unknown]

NARRATIVE: CASE EVENT DATE: 20191002
